FAERS Safety Report 16353915 (Version 1)
Quarter: 2019Q2

REPORT INFORMATION
  Report Type: Report from Study
  Country: IT (occurrence: IT)
  Receive Date: 20190524
  Receipt Date: 20190524
  Transmission Date: 20190711
  Serious: Yes (Hospitalization, Other)
  Sender: FDA-Public Use
  Company Number: IT-MYLANLABS-2019M1048175

PATIENT
  Age: 59 Year
  Sex: Female

DRUGS (8)
  1. DIAZEPAM. [Suspect]
     Active Substance: DIAZEPAM
     Indication: ANXIETY
     Dosage: 15 GTT DROPS, ONCE
     Route: 048
     Dates: start: 20181009, end: 20181009
  2. DULOXETINE. [Suspect]
     Active Substance: DULOXETINE
     Indication: DEPRESSION
     Dosage: 90 MILLIGRAM, ONCE
     Route: 048
     Dates: start: 20181009, end: 20181009
  3. OMEPRAZOLE. [Suspect]
     Active Substance: OMEPRAZOLE
     Indication: GASTROOESOPHAGEAL REFLUX DISEASE
     Dosage: 60 MILLIGRAM, TOTAL
     Route: 048
     Dates: start: 20181009, end: 20181009
  4. SIMVASTATIN. [Concomitant]
     Active Substance: SIMVASTATIN
     Indication: HYPERCHOLESTEROLAEMIA
     Dosage: UNK
  5. KETOPROFEN. [Suspect]
     Active Substance: KETOPROFEN
     Indication: PAIN
     Dosage: 150 MILLIGRAM, TOTAL
     Route: 048
     Dates: start: 20181009, end: 20181009
  6. PREDNISONE. [Suspect]
     Active Substance: PREDNISONE
     Indication: INFLAMMATION
     Dosage: 75 MILLIGRAM, TOTAL
     Route: 048
     Dates: start: 20181009, end: 20181009
  7. PLAUNAZIDE [Suspect]
     Active Substance: HYDROCHLOROTHIAZIDE\OLMESARTAN MEDOXOMIL
     Indication: HYPERTENSION
     Dosage: 3 DOSAGE FORM, TOTAL
     Route: 048
     Dates: start: 20181009, end: 20181009
  8. CLEXANE [Concomitant]
     Active Substance: ENOXAPARIN SODIUM
     Indication: SURGERY
     Dosage: UNK
     Route: 058

REACTIONS (4)
  - Intentional self-injury [Recovered/Resolved]
  - Drug abuse [Unknown]
  - Confusional state [Recovered/Resolved]
  - Intentional product misuse [Unknown]

NARRATIVE: CASE EVENT DATE: 20181009
